FAERS Safety Report 5696326-4 (Version None)
Quarter: 2008Q2

REPORT INFORMATION
  Report Type: 
  Country: None (occurrence: None)
  Receive Date: 20080407
  Receipt Date: 20080326
  Transmission Date: 20081010
  Serious: Yes (Other)
  Sender: FDA-Public Use
  Company Number: US-PFIZER INC-2007101152

PATIENT
  Sex: Female
  Weight: 68 kg

DRUGS (7)
  1. CHANTIX [Suspect]
     Indication: SMOKING CESSATION THERAPY
     Route: 048
     Dates: start: 20071118, end: 20080123
  2. TOPROL-XL [Concomitant]
  3. CRESTOR [Concomitant]
  4. ELAVIL [Concomitant]
  5. SOMA [Concomitant]
  6. HYDROCODONE BITARTRATE [Concomitant]
  7. METOPROLOL - SLOW RELEASE [Concomitant]

REACTIONS (8)
  - ABNORMAL BEHAVIOUR [None]
  - AGGRESSION [None]
  - BLOOD PRESSURE INCREASED [None]
  - HALLUCINATION, AUDITORY [None]
  - HOMICIDAL IDEATION [None]
  - MENTAL DISORDER [None]
  - PANIC ATTACK [None]
  - SUICIDAL IDEATION [None]
